FAERS Safety Report 9118167 (Version 2)
Quarter: 2013Q1

REPORT INFORMATION
  Report Type: Spontaneous
  Country: JP (occurrence: JP)
  Receive Date: 20130226
  Receipt Date: 20130326
  Transmission Date: 20140127
  Serious: Yes (Other)
  Sender: FDA-Public Use
  Company Number: JP-AMGEN-JPNSP2013011989

PATIENT
  Sex: Female
  Weight: 2.98 kg

DRUGS (3)
  1. ENBREL [Suspect]
     Dosage: UNK
     Route: 064
  2. BUCILLAMINE [Concomitant]
     Dosage: UNK
  3. TIOPRONIN [Concomitant]
     Dosage: UNK

REACTIONS (3)
  - Premature baby [Unknown]
  - Maternal exposure during pregnancy [Unknown]
  - Exposure during breast feeding [Unknown]
